FAERS Safety Report 4427554-3 (Version None)
Quarter: 2004Q3

REPORT INFORMATION
  Report Type: 
  Country: None (occurrence: None)
  Receive Date: 20040812
  Receipt Date: 20040804
  Transmission Date: 20050211
  Serious: Yes (Hospitalization)
  Sender: FDA-Public Use
  Company Number: FRWYE731229APR04

PATIENT
  Age: 41 Year
  Sex: Male

DRUGS (2)
  1. RAPAMUNE [Suspect]
     Indication: PROPHYLAXIS AGAINST TRANSPLANT REJECTION
     Dosage: 7 MG 1X PER 1 DAY ORAL
     Route: 048
     Dates: start: 20030510
  2. CELLCEPT [Suspect]
     Dosage: 1 G 2X PER 1 DAY ORAL
     Route: 048
     Dates: start: 20030501

REACTIONS (4)
  - COMPLICATIONS OF TRANSPLANTED KIDNEY [None]
  - MALIGNANT HYPERTENSION [None]
  - RENAL ARTERY STENOSIS [None]
  - VASCULAR GRAFT OCCLUSION [None]
